FAERS Safety Report 14093526 (Version 1)
Quarter: 2017Q4

REPORT INFORMATION
  Report Type: Spontaneous
  Country: US (occurrence: US)
  Receive Date: 20171016
  Receipt Date: 20171016
  Transmission Date: 20180321
  Serious: Yes (Death, Hospitalization)
  Sender: FDA-Public Use
  Company Number: PHEH2017US033135

PATIENT
  Age: 75 Year
  Sex: Female

DRUGS (2)
  1. LETROZOLE SANDOZ [Suspect]
     Active Substance: LETROZOLE
     Indication: BREAST CANCER
     Dosage: 600 MG, QD
     Route: 048
  2. KISQALI [Suspect]
     Active Substance: RIBOCICLIB
     Indication: BREAST CANCER
     Dosage: 600 MG, QD
     Route: 048

REACTIONS (5)
  - Respiratory failure [Fatal]
  - Acute respiratory distress syndrome [Unknown]
  - Dyspnoea [Fatal]
  - Interstitial lung disease [Unknown]
  - Cough [Fatal]
